FAERS Safety Report 8615228-4 (Version None)
Quarter: 2012Q3

REPORT INFORMATION
  Report Type: 
  Country: None (occurrence: None)
  Receive Date: 20120823
  Receipt Date: 20120815
  Transmission Date: 20120928
  Serious: Yes (Other)
  Sender: FDA-Public Use
  Company Number: CN-PFIZER INC-2012199271

PATIENT
  Age: 58 Year
  Sex: Female
  Weight: 62 kg

DRUGS (4)
  1. MECOBALAMIN [Suspect]
     Dosage: 0.5 MG*30/0.5MG
  2. EFFEXOR XR [Suspect]
     Indication: NEURALGIA
  3. EFFEXOR XR [Suspect]
     Indication: AUTONOMIC NEUROPATHY
  4. EFFEXOR XR [Suspect]
     Indication: ANXIETY
     Dosage: 75 MG, 1X/DAY
     Route: 048
     Dates: start: 20100316, end: 20100317

REACTIONS (4)
  - BLOOD PRESSURE INCREASED [None]
  - CHOKING SENSATION [None]
  - DIZZINESS [None]
  - OFF LABEL USE [None]
